FAERS Safety Report 4616150-0 (Version None)
Quarter: 2005Q1

REPORT INFORMATION
  Report Type: 
  Country: None (occurrence: None)
  Receive Date: 20050323
  Receipt Date: 20050311
  Transmission Date: 20050727
  Serious: Yes (Other)
  Sender: FDA-Public Use
  Company Number: US-BRISTOL-MYERS SQUIBB COMPANY-12894002

PATIENT
  Age: 79 Year
  Sex: Female

DRUGS (5)
  1. COUMADIN [Suspect]
     Indication: AORTIC VALVE REPLACEMENT
     Dosage: WARFARIN HELD FOR 3 DAYS
     Route: 048
  2. AVELOX [Interacting]
     Indication: SINUSITIS
     Dosage: 400MG QD 27-JUL-2000 TO 05-AUG-00 X 10 DAYS;THEN FROM 15-AUG-00 TO 24-AUG-00 X 10DAYS;STOPPED.
     Route: 048
     Dates: start: 20000727, end: 20000824
  3. LASIX [Concomitant]
  4. LIPITOR [Concomitant]
  5. NORVASC [Concomitant]

REACTIONS (3)
  - DRUG INTERACTION [None]
  - INTERNATIONAL NORMALISED RATIO INCREASED [None]
  - PROTHROMBIN TIME PROLONGED [None]
